FAERS Safety Report 18577475 (Version 1)
Quarter: 2020Q4

REPORT INFORMATION
  Report Type: Report from Study
  Country: US (occurrence: US)
  Receive Date: 20201204
  Receipt Date: 20201204
  Transmission Date: 20210114
  Serious: Yes (Hospitalization)
  Sender: FDA-Public Use
  Company Number: US-GW PHARMA-201811USGW0528

PATIENT

DRUGS (21)
  1. CLONIDINE. [Concomitant]
     Active Substance: CLONIDINE
     Indication: BEHAVIOUR DISORDER
     Dosage: 0.1 MILLIGRAM, EVERY NIGHT
     Route: 048
     Dates: start: 20180528
  2. DEXMEDETOMIDINE. [Concomitant]
     Active Substance: DEXMEDETOMIDINE
     Indication: OPHTHALMOLOGICAL EXAMINATION
     Dosage: 15 MICROGRAM, SINGLE
     Route: 042
     Dates: start: 20181025, end: 20181025
  3. MYDFRIN [Concomitant]
     Active Substance: PHENYLEPHRINE HYDROCHLORIDE
     Indication: OPHTHALMOLOGICAL EXAMINATION
     Dosage: 1 DROP, PRN
     Dates: start: 20181025, end: 20181025
  4. ONFI [Concomitant]
     Active Substance: CLOBAZAM
     Indication: TUBEROUS SCLEROSIS COMPLEX
     Dosage: 20 MILLIGRAM, BID
     Route: 048
     Dates: start: 20180130, end: 20181106
  5. MELATONIN [Concomitant]
     Active Substance: MELATONIN
     Indication: INSOMNIA
     Dosage: 5 MILLIGRAM, PRN
     Route: 048
     Dates: start: 2016
  6. ONFI [Concomitant]
     Active Substance: CLOBAZAM
     Dosage: 10 MILLIGRAM, BID
     Route: 048
     Dates: start: 20181108, end: 20181117
  7. ZYRTEC [Concomitant]
     Active Substance: CETIRIZINE HYDROCHLORIDE
     Indication: SEASONAL ALLERGY
     Dosage: 5 MILLIGRAM, QD
     Route: 048
     Dates: start: 2016
  8. EPIDIOLEX [Suspect]
     Active Substance: CANNABIDIOL
     Dosage: 50 MG/KG, 1500 MILLIGRAM, QD
     Route: 048
     Dates: start: 20181002, end: 20181119
  9. EPIDIOLEX [Suspect]
     Active Substance: CANNABIDIOL
     Dosage: 45 MG/KG, 1350 MILLIGRAM QD
     Route: 048
     Dates: start: 20181119
  10. ONFI [Concomitant]
     Active Substance: CLOBAZAM
     Dosage: 15 MILLIGRAM, BID
     Route: 048
     Dates: start: 20181106, end: 20181108
  11. QUILLIVANT XR [Concomitant]
     Active Substance: METHYLPHENIDATE HYDROCHLORIDE
     Indication: ATTENTION DEFICIT HYPERACTIVITY DISORDER
     Dosage: 60 MILLIGRAM, QD
     Route: 048
     Dates: start: 20180727
  12. PROPOFOL. [Concomitant]
     Active Substance: PROPOFOL
     Indication: OPHTHALMOLOGICAL EXAMINATION
     Dosage: 100 MILLIGRAM, SINGLE
     Route: 042
     Dates: start: 20181025, end: 20181025
  13. BANZEL [Concomitant]
     Active Substance: RUFINAMIDE
     Indication: TUBEROUS SCLEROSIS COMPLEX
     Dosage: 240 MILLIGRAM, BID
     Route: 048
     Dates: start: 20180119
  14. FLINTSTONES MULTIPLE VITAMINS [VITAMINS NOS] [Concomitant]
     Indication: NUTRITIONAL SUPPLEMENTATION
     Dosage: 1 DOSAGE FORM, QD
     Route: 048
     Dates: start: 2012
  15. CLARITIN ALLERGIC [Concomitant]
     Active Substance: OXYMETAZOLINE HYDROCHLORIDE
     Indication: SEASONAL ALLERGY
     Dosage: 5 MILLIGRAM, PRN
     Route: 048
     Dates: start: 2013
  16. ALBUTEROL HFA [Concomitant]
     Active Substance: ALBUTEROL SULFATE
     Indication: ASTHMA
     Dosage: 1.25 MILLIGRAM, PRN
     Dates: start: 20160909
  17. ONFI [Concomitant]
     Active Substance: CLOBAZAM
     Dosage: 7.5 MILLIGRAM, BID
     Route: 048
     Dates: start: 20181117
  18. TRILEPTAL [Concomitant]
     Active Substance: OXCARBAZEPINE
     Indication: TUBEROUS SCLEROSIS COMPLEX
     Dosage: 420 MILLIGRAM, BID
     Route: 048
     Dates: start: 20160108
  19. SINGULAIR [Concomitant]
     Active Substance: MONTELUKAST SODIUM
     Indication: ASTHMA
     Dosage: 4 MILLIGRAM, QD
     Route: 048
     Dates: start: 201601
  20. GADOTERIC ACID MEGLUMINE [Concomitant]
     Active Substance: GADOTERATE MEGLUMINE
     Indication: MAGNETIC RESONANCE IMAGING BRAIN
     Dosage: 6 MILLILITER, SINGLE
     Route: 042
     Dates: start: 20181025, end: 20181025
  21. EPIDIOLEX [Suspect]
     Active Substance: CANNABIDIOL
     Indication: TUBEROUS SCLEROSIS COMPLEX
     Dosage: 25 MG/KG, 1500 MILLIGRAM, QD
     Route: 048
     Dates: start: 20180919, end: 20181002

REACTIONS (2)
  - Mental status changes [Recovered/Resolved]
  - Mental status changes [Recovered/Resolved]

NARRATIVE: CASE EVENT DATE: 20181105
